FAERS Safety Report 9403962 (Version 3)
Quarter: 2014Q2

REPORT INFORMATION
  Report Type: Spontaneous
  Country: DK (occurrence: None)
  Receive Date: 20130712
  Receipt Date: 20140410
  Transmission Date: 20141212
  Serious: Yes (Other)
  Sender: FDA-Public Use
  Company Number: AUR-APL-2013-05794

PATIENT
  Age: 59 Year
  Sex: Male

DRUGS (3)
  1. METFORMIN [Suspect]
     Indication: TYPE 2 DIABETES MELLITUS
     Dosage: STOPPED
  2. LIRAGLUTIDE [Suspect]
     Indication: TYPE 2 DIABETES MELLITUS
  3. FORXIGA [Suspect]
     Indication: TYPE 2 DIABETES MELLITUS
     Dates: start: 201201

REACTIONS (4)
  - Depression [None]
  - Fatigue [None]
  - Weight decreased [None]
  - Feeling abnormal [None]
